FAERS Safety Report 16439073 (Version 1)
Quarter: 2019Q2

REPORT INFORMATION
  Report Type: Spontaneous
  Country: US (occurrence: US)
  Receive Date: 20190508
  Receipt Date: 20190508
  Transmission Date: 20190711
  Serious: Yes (Disabling)
  Sender: FDA-Public Use
  Company Number: None

PATIENT
  Age: 77 Year
  Sex: Male
  Weight: 88.45 kg

DRUGS (3)
  1. TELMISARTAN. [Suspect]
     Active Substance: TELMISARTAN
     Indication: HYPERTENSION
     Dosage: ?          QUANTITY:2 MG MILLIGRAM(S);?
     Route: 048
     Dates: start: 2016
  2. COQ10 [Concomitant]
     Active Substance: UBIDECARENONE
  3. ATORVASTATIN [Concomitant]
     Active Substance: ATORVASTATIN

REACTIONS (6)
  - Fatigue [None]
  - Pollakiuria [None]
  - Erectile dysfunction [None]
  - Gout [None]
  - Dry mouth [None]
  - Asthma [None]
